FAERS Safety Report 20905308 (Version 1)
Quarter: 2022Q2

REPORT INFORMATION
  Report Type: Spontaneous
  Country: US (occurrence: None)
  Receive Date: 20220601
  Receipt Date: 20220601
  Transmission Date: 20220721
  Serious: Yes (Disabling)
  Sender: FDA-Public Use
  Company Number: None

PATIENT
  Age: 51 Year
  Sex: Male
  Weight: 95.4 kg

DRUGS (4)
  1. PAXLOVID [Suspect]
     Active Substance: NIRMATRELVIR\RITONAVIR
     Indication: COVID-19
     Dates: start: 20220519, end: 20220523
  2. ALLOPURINOL [Concomitant]
     Active Substance: ALLOPURINOL
  3. VITAMIN D [Concomitant]
     Active Substance: VITAMIN D NOS
  4. VITAMIN B12 [Concomitant]
     Active Substance: CYANOCOBALAMIN

REACTIONS (2)
  - Rebound effect [None]
  - Malaise [None]

NARRATIVE: CASE EVENT DATE: 20220529
